FAERS Safety Report 18608571 (Version 1)
Quarter: 2020Q4

REPORT INFORMATION
  Report Type: Spontaneous
  Country: US (occurrence: US)
  Receive Date: 20201213
  Receipt Date: 20201213
  Transmission Date: 20210114
  Serious: No
  Sender: FDA-Public Use
  Company Number: US-SA-2020SA354836

PATIENT

DRUGS (1)
  1. DUPIXENT [Suspect]
     Active Substance: DUPILUMAB
     Indication: DERMATITIS ATOPIC

REACTIONS (8)
  - Psoriasis [Unknown]
  - Burning sensation [Unknown]
  - Erythema [Unknown]
  - Dermatitis atopic [Unknown]
  - Drug ineffective [Unknown]
  - Pain [Unknown]
  - Pruritus [Unknown]
  - Nail pitting [Unknown]
